FAERS Safety Report 6112127-7 (Version None)
Quarter: 2009Q1

REPORT INFORMATION
  Report Type: 
  Country: None (occurrence: None)
  Receive Date: 20090311
  Receipt Date: 20090303
  Transmission Date: 20090719
  Serious: Yes (Other)
  Sender: FDA-Public Use
  Company Number: FR-MERCK-0903FRA00006

PATIENT
  Age: 19 Year
  Sex: Male

DRUGS (9)
  1. CYTARABINE [Concomitant]
     Indication: ACUTE LYMPHOCYTIC LEUKAEMIA
     Route: 051
  2. VANCOMYCIN [Suspect]
     Indication: APLASIA
     Route: 042
     Dates: start: 20081111
  3. AMPHOTERICIN B AND CHOLESTEROL AND DISTEAROYLPHOSPHATIDYLGLYCEROL AND [Suspect]
     Indication: APLASIA
     Route: 042
     Dates: start: 20081020
  4. DAUNORUBICIN HYDROCHLORIDE [Suspect]
     Indication: ACUTE LYMPHOCYTIC LEUKAEMIA
     Route: 042
     Dates: start: 20081028, end: 20081111
  5. METHYLPREDNISOLONE ACETATE [Concomitant]
     Indication: ACUTE LYMPHOCYTIC LEUKAEMIA
     Route: 065
  6. METHOTREXATE [Concomitant]
     Indication: ACUTE LYMPHOCYTIC LEUKAEMIA
     Route: 065
  7. CYCLOPHOSPHAMIDE [Concomitant]
     Indication: ACUTE LYMPHOCYTIC LEUKAEMIA
     Route: 051
  8. VINCRISTINE SULFATE [Concomitant]
     Indication: ACUTE LYMPHOCYTIC LEUKAEMIA
     Route: 065
  9. PRIMAXIN [Suspect]
     Indication: APLASIA
     Route: 042
     Dates: start: 20081111

REACTIONS (2)
  - DERMATITIS EXFOLIATIVE [None]
  - FACE OEDEMA [None]
